FAERS Safety Report 9317089 (Version 1)
Quarter: 2013Q2

REPORT INFORMATION
  Report Type: Spontaneous
  Country: PL (occurrence: None)
  Receive Date: 20130523
  Receipt Date: 20130523
  Transmission Date: 20140414
  Serious: Yes (Death)
  Sender: FDA-Public Use
  Company Number: SYM-2013-03808

PATIENT
  Sex: 0

DRUGS (4)
  1. FLUOROURACIL (FLUOROURACIL) (FLUOROURACIL) [Suspect]
     Indication: RECTAL CANCER
     Route: 040
  2. OXALIPLATIN [Suspect]
     Indication: RECTAL CANCER
  3. LEUCOVORIN [Suspect]
     Indication: RECTAL CANCER
     Route: 040
  4. THERAPEUTIC RADIOPHARMACEUTICALS (THERAPEUTIC RADIOPHARMACEUTICALS) [Suspect]
     Indication: RECTAL CANCER

REACTIONS (2)
  - Embolism [None]
  - Embolism [None]
